FAERS Safety Report 6256186-X (Version None)
Quarter: 2009Q3

REPORT INFORMATION
  Report Type: 
  Country: None (occurrence: None)
  Receive Date: 20090706
  Receipt Date: 20090625
  Transmission Date: 20100115
  Serious: Yes (Other)
  Sender: FDA-Public Use
  Company Number: PHHY2009FR25948

PATIENT
  Age: 38 Year
  Sex: Male

DRUGS (4)
  1. TEGRETOL [Suspect]
     Indication: ABNORMAL BEHAVIOUR
     Dosage: 3 DF DAILY
  2. STABLON [Concomitant]
  3. EQUANIL [Concomitant]
  4. TEMESTA [Concomitant]

REACTIONS (2)
  - EMOTIONAL DISORDER [None]
  - GRAND MAL CONVULSION [None]
